FAERS Safety Report 5132107-8 (Version None)
Quarter: 2006Q4

REPORT INFORMATION
  Report Type: 
  Country: None (occurrence: None)
  Receive Date: 20061017
  Receipt Date: 20061009
  Transmission Date: 20070319
  Serious: Yes (Life-Threatening, Hospitalization, Other)
  Sender: FDA-Public Use
  Company Number: 2006SP004019

PATIENT
  Age: 67 Year
  Sex: Female

DRUGS (2)
  1. ALBUTEROL SULFATE [Suspect]
     Indication: ASTHMA
     Dosage: 0 DF, UNK; PO
     Route: 048
  2. ADVAIR (CON.) [Concomitant]

REACTIONS (4)
  - ASTHMA [None]
  - DEATH OF FRIEND [None]
  - DEATH OF PARENT [None]
  - PNEUMONIA [None]
